FAERS Safety Report 13854374 (Version 1)
Quarter: 2017Q3

REPORT INFORMATION
  Report Type: Spontaneous
  Country: US (occurrence: US)
  Receive Date: 20170810
  Receipt Date: 20170810
  Transmission Date: 20171127
  Serious: No
  Sender: FDA-Public Use
  Company Number: US-GLAXOSMITHKLINE-US2017120054

PATIENT
  Age: 53 Year
  Sex: Male

DRUGS (2)
  1. VOLTAREN [Suspect]
     Active Substance: DICLOFENAC SODIUM
     Indication: TENDONITIS
  2. VOLTAREN [Suspect]
     Active Substance: DICLOFENAC SODIUM
     Indication: INFLAMMATION
     Dosage: UNK
     Dates: start: 201707

REACTIONS (3)
  - Drug effective for unapproved indication [Unknown]
  - Prescription drug used without a prescription [Unknown]
  - Product use in unapproved indication [Unknown]
